FAERS Safety Report 10221291 (Version 1)
Quarter: 2014Q2

REPORT INFORMATION
  Report Type: Spontaneous
  Country: US (occurrence: None)
  Receive Date: 20140605
  Receipt Date: 20140605
  Transmission Date: 20141212
  Serious: No
  Sender: FDA-Public Use
  Company Number: None

PATIENT
  Age: 33 Year
  Sex: Male
  Weight: 80 kg

DRUGS (2)
  1. QUETIAPINE 300 MG ROXANE [Suspect]
     Indication: BIPOLAR DISORDER
     Route: 048
     Dates: start: 2013, end: 2014
  2. QUETIAPINE [Suspect]
     Route: 048
     Dates: start: 2014

REACTIONS (1)
  - Product substitution issue [None]
